FAERS Safety Report 13109803 (Version 1)
Quarter: 2017Q1

REPORT INFORMATION
  Report Type: Spontaneous
  Country: US (occurrence: US)
  Receive Date: 20170112
  Receipt Date: 20170112
  Transmission Date: 20170428
  Serious: Yes (Hospitalization)
  Sender: FDA-Public Use
  Company Number: US-ROCHE-1100894

PATIENT
  Age: 63 Year
  Sex: Male

DRUGS (7)
  1. ACTIVASE [Suspect]
     Active Substance: ALTEPLASE
     Indication: ACUTE MYOCARDIAL INFARCTION
     Route: 040
  2. ASPIRIN. [Concomitant]
     Active Substance: ASPIRIN
  3. HEPARIN SODIUM. [Concomitant]
     Active Substance: HEPARIN SODIUM
  4. MORPHINE [Concomitant]
     Active Substance: MORPHINE
     Route: 042
  5. LIDOCAINE. [Concomitant]
     Active Substance: LIDOCAINE
     Dosage: 2 MG/MIN
     Route: 065
  6. NITROGLYCERIN. [Concomitant]
     Active Substance: NITROGLYCERIN
  7. ATROPINE. [Concomitant]
     Active Substance: ATROPINE

REACTIONS (3)
  - Ventricular fibrillation [Unknown]
  - Vomiting [Unknown]
  - Pulmonary oedema [Unknown]
